FAERS Safety Report 8777731 (Version 1)
Quarter: 2012Q4

REPORT INFORMATION
  Report Type: 
  Country: IT (occurrence: IT)
  Receive Date: 20120912
  Receipt Date: 20120912
  Transmission Date: 20130627
  Serious: Yes (Death, Other)
  Sender: FDA-Public Use
  Company Number: PHHY2011IT117303

PATIENT
  Age: 3 Year

DRUGS (3)
  1. CICLOSPORIN [Suspect]
     Indication: ANAEMIA HAEMOLYTIC AUTOIMMUNE
  2. PREDNISONE [Suspect]
     Indication: ANAEMIA HAEMOLYTIC AUTOIMMUNE
  3. AZATHIOPRINE [Suspect]
     Indication: ANAEMIA HAEMOLYTIC AUTOIMMUNE

REACTIONS (3)
  - Death [Fatal]
  - Sepsis [Unknown]
  - Anaemia haemolytic autoimmune [Unknown]
